FAERS Safety Report 7568287-4 (Version None)
Quarter: 2011Q2

REPORT INFORMATION
  Report Type: 
  Country: None (occurrence: None)
  Receive Date: 20110623
  Receipt Date: 20110617
  Transmission Date: 20111010
  Serious: Yes (Hospitalization)
  Sender: FDA-Public Use
  Company Number: US-ROCHE-775439

PATIENT
  Age: 60 Year
  Sex: Female

DRUGS (4)
  1. CARBOPLATIN [Suspect]
     Dosage: DOSE NOT MENTIONED
     Route: 042
     Dates: start: 20110127
  2. TRASTUZUMAB [Suspect]
     Dosage: DOSE REPORTED AS VARIABLE
     Route: 042
     Dates: start: 20110127
  3. DOCETAXEL [Suspect]
     Route: 042
     Dates: start: 20110127
  4. GRANULOCYTE COLONY STIMULATING FACTOR [Concomitant]

REACTIONS (3)
  - SEPSIS [None]
  - BLOOD MAGNESIUM DECREASED [None]
  - CHILLS [None]
